FAERS Safety Report 9127584 (Version 2)
Quarter: 2013Q2

REPORT INFORMATION
  Report Type: Spontaneous
  Country: US (occurrence: US)
  Receive Date: 20130228
  Receipt Date: 20130422
  Transmission Date: 20140414
  Serious: No
  Sender: FDA-Public Use
  Company Number: US-PFIZER INC-2013069657

PATIENT
  Age: 64 Year
  Sex: Female
  Weight: 82.99 kg

DRUGS (5)
  1. FLECTOR [Suspect]
     Indication: PAIN
     Dosage: 1 DF, EVERY 12 HOURS
     Route: 062
     Dates: start: 20130131
  2. COREG [Concomitant]
     Indication: HYPERTENSION
     Dosage: 6.25 MG, 2X/DAY
  3. ALDACTONE [Concomitant]
     Indication: HYPERTENSION
     Dosage: 25 MG, 1X/DAY
  4. AMLODIPINE [Concomitant]
     Indication: HYPERTENSION
     Dosage: 5 MG, DAILY
  5. LOSARTAN [Concomitant]
     Indication: HYPERTENSION
     Dosage: 50 MG, DAILY

REACTIONS (3)
  - Product adhesion issue [Unknown]
  - Wrong technique in drug usage process [Unknown]
  - Drug ineffective [Unknown]
